FAERS Safety Report 4736015-3 (Version None)
Quarter: 2005Q3

REPORT INFORMATION
  Report Type: 
  Country: None (occurrence: None)
  Receive Date: 20050805
  Receipt Date: 20050311
  Transmission Date: 20060218
  Serious: Yes (Hospitalization, Disabling, Other)
  Sender: FDA-Public Use
  Company Number: US-MERCK-0503USA02598

PATIENT
  Age: 41 Year
  Sex: Male
  Weight: 55 kg

DRUGS (2)
  1. VIOXX [Suspect]
     Indication: OSTEOARTHRITIS
     Route: 048
     Dates: start: 20030101, end: 20040901
  2. BEXTRA [Concomitant]
     Indication: OSTEOARTHRITIS
     Route: 065
     Dates: start: 20040408

REACTIONS (5)
  - CARDIAC FAILURE CONGESTIVE [None]
  - CORONARY ARTERY DISEASE [None]
  - DYSPEPSIA [None]
  - HEADACHE [None]
  - MYOCARDIAL INFARCTION [None]
